FAERS Safety Report 9914236 (Version 1)
Quarter: 2014Q1

REPORT INFORMATION
  Report Type: Spontaneous
  Country: US (occurrence: None)
  Receive Date: 20140219
  Receipt Date: 20140219
  Transmission Date: 20141002
  Serious: Yes (Disabling, Other)
  Sender: FDA-Public Use
  Company Number: None

PATIENT
  Age: 57 Year
  Sex: Male
  Weight: 72.58 kg

DRUGS (1)
  1. ALPRAZOLAM [Suspect]
     Indication: DEPRESSION

REACTIONS (7)
  - Dyskinesia [None]
  - Headache [None]
  - Aggression [None]
  - Divorced [None]
  - Product quality issue [None]
  - Reaction to drug excipients [None]
  - Abnormal sleep-related event [None]
